FAERS Safety Report 8193018-7 (Version None)
Quarter: 2012Q1

REPORT INFORMATION
  Report Type: 
  Country: None (occurrence: None)
  Receive Date: 20120221
  Receipt Date: 20111101
  Transmission Date: 20120608
  Serious: No
  Sender: FDA-Public Use
  Company Number: 1000025102

PATIENT
  Age: 32 Year
  Sex: Female

DRUGS (4)
  1. BIRTH CONTROL [Concomitant]
  2. VIIBRYD [Suspect]
     Indication: DEPRESSION
     Dosage: 10 MG (10 MG,1 IN 1 D),ORAL : 20 MG (20 MG,1 IN 1 D),ORAL : 40 MG (40 MG,1 IN 1  D),ORAL
     Route: 048
     Dates: start: 20111015
  3. VIIBRYD [Suspect]
     Indication: DEPRESSION
     Dosage: 10 MG (10 MG,1 IN 1 D),ORAL : 20 MG (20 MG,1 IN 1 D),ORAL : 40 MG (40 MG,1 IN 1  D),ORAL
     Route: 048
     Dates: start: 20111001, end: 20111007
  4. VIIBRYD [Suspect]
     Indication: DEPRESSION
     Dosage: 10 MG (10 MG,1 IN 1 D),ORAL : 20 MG (20 MG,1 IN 1 D),ORAL : 40 MG (40 MG,1 IN 1  D),ORAL
     Route: 048
     Dates: start: 20111008, end: 20111014

REACTIONS (5)
  - HYPERHIDROSIS [None]
  - PARAESTHESIA [None]
  - FEELING ABNORMAL [None]
  - DIZZINESS [None]
  - INSOMNIA [None]
